FAERS Safety Report 7221300-6 (Version None)
Quarter: 2011Q1

REPORT INFORMATION
  Report Type: 
  Country: None (occurrence: None)
  Receive Date: 20110112
  Receipt Date: 20110110
  Transmission Date: 20110831
  Serious: Yes (Death)
  Sender: FDA-Public Use
  Company Number: PHHY2011CA01823

PATIENT
  Sex: Male

DRUGS (1)
  1. SANDOSTATIN LAR [Suspect]
     Indication: IRON DEFICIENCY ANAEMIA
     Dosage: 10 MG, EVERY 4 WEEK
     Route: 030
     Dates: start: 20100602, end: 20101203

REACTIONS (1)
  - DEATH [None]
